FAERS Safety Report 8181399-X (Version None)
Quarter: 2012Q1

REPORT INFORMATION
  Report Type: 
  Country: None (occurrence: None)
  Receive Date: 20120228
  Receipt Date: 20120223
  Transmission Date: 20120608
  Serious: No
  Sender: FDA-Public Use
  Company Number: US-PFIZER INC-2012049598

PATIENT
  Sex: Female
  Weight: 63.492 kg

DRUGS (2)
  1. CHANTIX [Suspect]
     Dosage: 1 MG, 2X/DAY
     Route: 048
  2. CHANTIX [Suspect]
     Indication: SMOKING CESSATION THERAPY
     Dosage: 0.5 MG, DAILY
     Route: 048
     Dates: start: 20111111

REACTIONS (6)
  - INSOMNIA [None]
  - CONSTIPATION [None]
  - FLATULENCE [None]
  - ABDOMINAL DISTENSION [None]
  - WEIGHT INCREASED [None]
  - ABNORMAL DREAMS [None]
